FAERS Safety Report 4437962-2 (Version None)
Quarter: 2004Q3

REPORT INFORMATION
  Report Type: 
  Country: None (occurrence: None)
  Receive Date: 20040831
  Receipt Date: 20040510
  Transmission Date: 20050211
  Serious: Yes (Life-Threatening, Hospitalization, Disabling, Other)
  Sender: FDA-Public Use
  Company Number: DE-GLAXOSMITHKLINE-D0043770A

PATIENT
  Age: 68 Year
  Sex: Female
  Weight: 71 kg

DRUGS (3)
  1. QUILONUM RETARD [Suspect]
     Indication: CYCLOTHYMIC DISORDER
     Dosage: 675MG PER DAY
     Route: 048
     Dates: start: 19900101, end: 20040701
  2. DOXEPIN HCL [Concomitant]
     Indication: DEPRESSION
     Dosage: 150MG PER DAY
     Route: 065
     Dates: start: 20040201, end: 20040601
  3. TAFIL [Concomitant]
     Indication: SLEEP DISORDER
     Dosage: 1MG AS REQUIRED
     Route: 048
     Dates: start: 20040101

REACTIONS (1)
  - HYPOAESTHESIA [None]
